FAERS Safety Report 16724888 (Version 2)
Quarter: 2019Q3

REPORT INFORMATION
  Report Type: Spontaneous
  Country: US (occurrence: US)
  Receive Date: 20190821
  Receipt Date: 20190830
  Transmission Date: 20191005
  Serious: No
  Sender: FDA-Public Use
  Company Number: US-PFIZER INC-2019358607

PATIENT
  Age: 59 Year
  Sex: Female
  Weight: 70.3 kg

DRUGS (4)
  1. DARVON [Suspect]
     Active Substance: PROPOXYPHENE HYDROCHLORIDE
     Dosage: UNK
  2. PROPOXYPHENE. [Suspect]
     Active Substance: PROPOXYPHENE
     Dosage: UNK
  3. DOXAZOSIN MESILATE [Suspect]
     Active Substance: DOXAZOSIN MESYLATE
     Dosage: UNK
  4. PHENYLPROPANOLAMINE HCL [Suspect]
     Active Substance: PHENYLPROPANOLAMINE
     Dosage: UNK

REACTIONS (3)
  - Nausea [Unknown]
  - Vomiting [Unknown]
  - Drug hypersensitivity [Unknown]
